FAERS Safety Report 16735458 (Version 4)
Quarter: 2020Q1

REPORT INFORMATION
  Report Type: Report from Study
  Country: JP (occurrence: JP)
  Receive Date: 20190823
  Receipt Date: 20200310
  Transmission Date: 20200409
  Serious: Yes (Death, Life-Threatening, Hospitalization)
  Sender: FDA-Public Use
  Company Number: JP-PFIZER INC-2019357116

PATIENT
  Age: 79 Year
  Sex: Female
  Weight: 38 kg

DRUGS (8)
  1. TENORMIN [Concomitant]
     Active Substance: ATENOLOL
     Indication: HYPERTENSION
     Dosage: UNK
     Route: 048
  2. XELJANZ [Suspect]
     Active Substance: TOFACITINIB CITRATE
     Indication: COLITIS ULCERATIVE
     Dosage: 10 MG, 2X/DAY
     Route: 048
     Dates: start: 20190620, end: 20191106
  3. ISCOTIN [Concomitant]
     Active Substance: ISONIAZID
     Dosage: UNK
     Route: 048
     Dates: start: 20190620
  4. NEXIUM [Concomitant]
     Active Substance: ESOMEPRAZOLE MAGNESIUM
     Indication: GASTRIC ULCER
     Dosage: UNK
     Route: 048
  5. BROTIZOLAM [Concomitant]
     Active Substance: BROTIZOLAM
     Indication: INSOMNIA
     Dosage: UNK
     Route: 048
  6. LIALDA [Concomitant]
     Active Substance: MESALAMINE
     Indication: COLITIS ULCERATIVE
     Dosage: UNK
     Route: 048
     Dates: start: 20170821
  7. CALFINA [ALFACALCIDOL] [Concomitant]
     Active Substance: ALFACALCIDOL
     Indication: OSTEOPOROSIS
     Dosage: UNK
     Route: 048
  8. MIYA-BM [Concomitant]
     Active Substance: CLOSTRIDIUM BUTYRICUM SPORES STRAIN M-55
     Indication: PROPHYLAXIS
     Dosage: UNK
     Route: 048

REACTIONS (3)
  - Diverticulitis [Unknown]
  - C-reactive protein increased [Recovering/Resolving]
  - Abscess intestinal [Fatal]

NARRATIVE: CASE EVENT DATE: 20190818
